FAERS Safety Report 8339933-2 (Version None)
Quarter: 2012Q2

REPORT INFORMATION
  Report Type: 
  Country: None (occurrence: None)
  Receive Date: 20120507
  Receipt Date: 20120424
  Transmission Date: 20120825
  Serious: Yes (Death, Hospitalization, Other)
  Sender: FDA-Public Use
  Company Number: ES-CELGENEUS-144-50794-12042706

PATIENT
  Age: 67 Year
  Sex: Male

DRUGS (3)
  1. ITRACONAZOLE [Concomitant]
     Indication: PROPHYLAXIS
     Dosage: 800 MILLIGRAM
     Route: 041
     Dates: start: 20111128, end: 20111215
  2. ACYCLOVIR [Concomitant]
     Indication: PROPHYLAXIS
     Dosage: 3200 MILLIGRAM
     Route: 048
     Dates: start: 20111128, end: 20111205
  3. VIDAZA [Suspect]
     Route: 058
     Dates: start: 20111114, end: 20111116

REACTIONS (4)
  - HEPATOSPLENOMEGALY [None]
  - DEATH [None]
  - JAUNDICE [None]
  - RESPIRATORY TRACT INFECTION [None]
